FAERS Safety Report 7529539-7 (Version None)
Quarter: 2011Q2

REPORT INFORMATION
  Report Type: 
  Country: None (occurrence: None)
  Receive Date: 20110607
  Receipt Date: 20050721
  Transmission Date: 20111010
  Serious: Yes (Death)
  Sender: FDA-Public Use
  Company Number: PHFR2005IE00440

PATIENT
  Sex: Female

DRUGS (1)
  1. CLOZARIL [Suspect]
     Indication: SCHIZOPHRENIA
     Route: 048
     Dates: start: 20040604

REACTIONS (5)
  - INTERNAL INJURY [None]
  - HAEMORRHAGE [None]
  - HAEMATEMESIS [None]
  - CIRCULATORY COLLAPSE [None]
  - DIABETES MELLITUS INADEQUATE CONTROL [None]
